FAERS Safety Report 6533940-8 (Version None)
Quarter: 2010Q1

REPORT INFORMATION
  Report Type: 
  Country: None (occurrence: None)
  Receive Date: 20100112
  Receipt Date: 20091231
  Transmission Date: 20100710
  Serious: Yes (Hospitalization)
  Sender: FDA-Public Use
  Company Number: US-BIOGENIDEC-2009BI010471

PATIENT
  Sex: Female

DRUGS (2)
  1. TYSABRI [Suspect]
     Indication: MULTIPLE SCLEROSIS
     Route: 042
     Dates: start: 20070712
  2. TYSABRI [Suspect]
     Route: 042

REACTIONS (7)
  - FALL [None]
  - IMPAIRED HEALING [None]
  - JOINT INJURY [None]
  - OPEN WOUND [None]
  - PERONEAL NERVE PALSY [None]
  - TREMOR [None]
  - WOUND INFECTION [None]
